FAERS Safety Report 12672579 (Version 1)
Quarter: 2016Q3

REPORT INFORMATION
  Report Type: Spontaneous
  Country: US (occurrence: US)
  Receive Date: 20160822
  Receipt Date: 20160822
  Transmission Date: 20161109
  Serious: No
  Sender: FDA-Public Use
  Company Number: US-JNJFOC-20160715240

PATIENT
  Sex: Female

DRUGS (2)
  1. MENS ROGAINE EXTRA STRENGTH [Suspect]
     Active Substance: MINOXIDIL
     Indication: ALOPECIA
     Dosage: TWICE DAILY, THEN ONCE DAILY
     Route: 061
  2. MENS ROGAINE EXTRA STRENGTH [Suspect]
     Active Substance: MINOXIDIL
     Indication: ALOPECIA
     Dosage: TWICE DAILY, THEN ONCE DAILY
     Route: 061

REACTIONS (4)
  - Intentional product misuse [Recovering/Resolving]
  - Hair growth abnormal [Recovering/Resolving]
  - Skin disorder [Recovering/Resolving]
  - Product use issue [Recovering/Resolving]
